FAERS Safety Report 17551129 (Version 1)
Quarter: 2020Q1

REPORT INFORMATION
  Report Type: Spontaneous
  Country: US (occurrence: US)
  Receive Date: 20200317
  Receipt Date: 20200317
  Transmission Date: 20200409
  Serious: Yes (Hospitalization, Other)
  Sender: FDA-Public Use
  Company Number: US-BAYER-2019-066585

PATIENT
  Age: 74 Year
  Sex: Male
  Weight: 64 kg

DRUGS (3)
  1. XARELTO [Suspect]
     Active Substance: RIVAROXABAN
     Indication: CEREBROVASCULAR ACCIDENT PROPHYLAXIS
     Dosage: 20 MG, UNK
     Route: 048
     Dates: end: 201901
  2. XARELTO [Suspect]
     Active Substance: RIVAROXABAN
     Indication: ATRIAL FIBRILLATION
  3. ASPIRIN (CARDIO) [Suspect]
     Active Substance: ASPIRIN
     Dosage: 81 MG, QD
     Route: 048

REACTIONS (2)
  - Upper gastrointestinal haemorrhage [Recovering/Resolving]
  - Haemorrhage [Unknown]

NARRATIVE: CASE EVENT DATE: 201901
